FAERS Safety Report 21036458 (Version 4)
Quarter: 2022Q3

REPORT INFORMATION
  Report Type: Spontaneous
  Country: DE (occurrence: DE)
  Receive Date: 20220702
  Receipt Date: 20220909
  Transmission Date: 20221026
  Serious: Yes (Life-Threatening, Hospitalization, Other)
  Sender: FDA-Public Use
  Company Number: None

PATIENT
  Age: 67 Year
  Sex: Male
  Weight: 78 kg

DRUGS (1)
  1. IMBRUVICA [Suspect]
     Active Substance: IBRUTINIB
     Indication: Chronic lymphocytic leukaemia
     Route: 048
     Dates: start: 20201229, end: 20211020

REACTIONS (5)
  - Cardiac failure chronic [Recovered/Resolved with Sequelae]
  - Cardiomyopathy [Recovered/Resolved with Sequelae]
  - Electrocardiogram abnormal [Unknown]
  - Dyspnoea exertional [Unknown]
  - Troponin increased [Unknown]

NARRATIVE: CASE EVENT DATE: 20210812
